FAERS Safety Report 8544345 (Version 3)
Quarter: 2013Q3

REPORT INFORMATION
  Report Type: Spontaneous
  Country: US (occurrence: US)
  Receive Date: 20120503
  Receipt Date: 20130814
  Transmission Date: 20140515
  Serious: Yes (Life-Threatening, Hospitalization, Other)
  Sender: FDA-Public Use
  Company Number: US-BAYER-2012-042785

PATIENT
  Age: 21 Year
  Sex: Female
  Weight: 81.63 kg

DRUGS (15)
  1. YASMIN [Suspect]
     Indication: CONTRACEPTION
     Dosage: UNK
     Dates: start: 20070410, end: 20071101
  2. YASMIN [Suspect]
     Indication: CONTRACEPTION
     Dosage: UNK
     Dates: start: 20070410, end: 20070907
  3. YAZ [Suspect]
  4. METRONIDAZOLE [Concomitant]
     Dosage: 0.75%
     Route: 067
  5. IBUPROFEN [Concomitant]
     Dosage: 800 MG, UNK
  6. ACETAMINOPHEN W/PROPOXYPHENE [Concomitant]
  7. COZAAR [Concomitant]
  8. BACTROBAN [Concomitant]
  9. HIBICLENS [Concomitant]
  10. DARVOCET [Concomitant]
  11. BACTRIM [Concomitant]
  12. XANAX [Concomitant]
  13. BACLOFEN [Concomitant]
     Indication: PAIN
  14. DONNATAL [Concomitant]
  15. FLEXERIL [Concomitant]

REACTIONS (45)
  - Pulmonary embolism [Recovered/Resolved]
  - Deep vein thrombosis [None]
  - Injury [None]
  - Pain [None]
  - Anxiety [None]
  - Anhedonia [None]
  - Fear [None]
  - Cardio-respiratory arrest [None]
  - Respiratory arrest [None]
  - Ventricular fibrillation [None]
  - Atrial fibrillation [None]
  - Atrial thrombosis [None]
  - Hypoxic-ischaemic encephalopathy [None]
  - Renal failure acute [None]
  - Atelectasis [Recovered/Resolved]
  - Pleural effusion [Recovered/Resolved]
  - Sepsis [None]
  - Pneumonitis [None]
  - Fungaemia [None]
  - Hepatic ischaemia [None]
  - Syncope [Recovered/Resolved]
  - Local swelling [None]
  - Gait disturbance [None]
  - Total lung capacity decreased [Recovered/Resolved]
  - Emotional distress [None]
  - Myositis [None]
  - Dyspnoea [Recovered/Resolved]
  - Neuralgia [None]
  - Tendonitis [None]
  - Tenderness [None]
  - Coma [None]
  - Injury [None]
  - Lung infiltration [Recovered/Resolved]
  - Anaemia [None]
  - Nerve injury [None]
  - Polyneuropathy [None]
  - Myopathy [None]
  - Pyrexia [None]
  - Leukocytosis [None]
  - Renal tubular necrosis [None]
  - Haemorrhage [None]
  - Intestinal ischaemia [None]
  - Scar [None]
  - Contusion [Recovered/Resolved]
  - Musculoskeletal chest pain [Recovered/Resolved]
